FAERS Safety Report 9934917 (Version 2)
Quarter: 2014Q1

REPORT INFORMATION
  Report Type: Spontaneous
  Country: US (occurrence: US)
  Receive Date: 20140228
  Receipt Date: 20140228
  Transmission Date: 20141002
  Serious: Yes (Disabling)
  Sender: FDA-Public Use
  Company Number: US-GE HEALTHCARE MEDICAL DIAGNOSTICS-OSCN-PR-0803S-0105

PATIENT
  Age: 50 Year
  Sex: Female

DRUGS (8)
  1. OMNISCAN [Suspect]
     Indication: HYPOAESTHESIA
     Route: 042
     Dates: start: 20001102, end: 20001102
  2. OMNISCAN [Suspect]
     Indication: ASTHENIA
     Route: 042
     Dates: start: 20040614, end: 20040614
  3. OMNISCAN [Suspect]
     Indication: PARAESTHESIA
     Route: 042
     Dates: start: 20040617, end: 20040617
  4. OMNISCAN [Suspect]
     Indication: HEADACHE
     Route: 042
     Dates: start: 20040727, end: 20040727
  5. OMNISCAN [Suspect]
     Indication: CEREBRAL ISCHAEMIA
     Route: 042
     Dates: start: 20041216, end: 20041216
  6. OMNISCAN [Suspect]
     Indication: CEREBROVASCULAR STENOSIS
     Route: 042
     Dates: start: 20000905, end: 20000905
  7. OMNISCAN [Suspect]
     Indication: PANCREATIC DISORDER
  8. OMNISCAN [Suspect]
     Indication: INTERMITTENT CLAUDICATION

REACTIONS (1)
  - Nephrogenic systemic fibrosis [Not Recovered/Not Resolved]
